FAERS Safety Report 8225031-5 (Version None)
Quarter: 2012Q1

REPORT INFORMATION
  Report Type: 
  Country: None (occurrence: None)
  Receive Date: 20120319
  Receipt Date: 20120305
  Transmission Date: 20120608
  Serious: Yes (Other)
  Sender: FDA-Public Use
  Company Number: JP-1190895

PATIENT
  Age: 6 Year
  Sex: Male

DRUGS (1)
  1. PATANOL [Suspect]
     Indication: CONJUNCTIVITIS ALLERGIC
     Dosage: (1 GTT QID OPHTHALMIC)
     Route: 047
     Dates: start: 20110601, end: 20120227

REACTIONS (1)
  - ANAPHYLACTOID REACTION [None]
